FAERS Safety Report 8600969-5 (Version None)
Quarter: 2012Q3

REPORT INFORMATION
  Report Type: 
  Country: None (occurrence: None)
  Receive Date: 20120803
  Receipt Date: 20120723
  Transmission Date: 20120928
  Serious: Yes (Hospitalization, Other)
  Sender: FDA-Public Use
  Company Number: VAL_00802_2012

PATIENT
  Age: 7 Year
  Sex: Male

DRUGS (3)
  1. VALPROIC ACID [Concomitant]
  2. CARBAMAZEPINE [Suspect]
     Indication: EPILEPSY
     Dosage: (DF)
  3. CARBAMAZEPINE [Suspect]
     Indication: CONVULSION
     Dosage: (DF)

REACTIONS (9)
  - DRUG HYPERSENSITIVITY [None]
  - RESPIRATORY DISTRESS [None]
  - ACTIVITIES OF DAILY LIVING IMPAIRED [None]
  - HAEMOGLOBIN DECREASED [None]
  - HYPOGAMMAGLOBULINAEMIA [None]
  - EXERCISE TOLERANCE DECREASED [None]
  - BRONCHIECTASIS [None]
  - B-LYMPHOCYTE COUNT DECREASED [None]
  - INTERSTITIAL LUNG DISEASE [None]
